FAERS Safety Report 21669313 (Version 4)
Quarter: 2022Q4

REPORT INFORMATION
  Report Type: Spontaneous
  Country: IR (occurrence: IR)
  Receive Date: 20221201
  Receipt Date: 20221213
  Transmission Date: 20230113
  Serious: Yes (Life-Threatening, Hospitalization, Other)
  Sender: FDA-Public Use
  Company Number: IR-MLMSERVICE-20221121-3932854-1

PATIENT
  Age: 73 Year
  Sex: Female

DRUGS (15)
  1. METHYLPREDNISOLONE ACETATE [Suspect]
     Active Substance: METHYLPREDNISOLONE ACETATE
     Indication: Lung disorder
     Dosage: UNK
  2. METHYLPREDNISOLONE ACETATE [Suspect]
     Active Substance: METHYLPREDNISOLONE ACETATE
     Indication: COVID-19
  3. PREDNISOLONE [Suspect]
     Active Substance: PREDNISOLONE
     Indication: COVID-19
     Dosage: 25-175 MG DAILY
     Dates: start: 202105
  4. PREDNISOLONE [Suspect]
     Active Substance: PREDNISOLONE
     Dosage: 25-175 MG DAILY
     Dates: start: 202105
  5. DEXAMETHASONE [Suspect]
     Active Substance: DEXAMETHASONE
     Indication: COVID-19
     Dosage: 4 MG TWICE DAILY FOR TWO WEEKS
     Dates: start: 202105, end: 2021
  6. INSULIN NOS [Concomitant]
     Active Substance: INSULIN NOS
     Indication: Diabetes mellitus
     Dosage: 8 IU, 1X/DAY
     Dates: start: 202105, end: 2021
  7. REMDESIVIR [Concomitant]
     Active Substance: REMDESIVIR
     Indication: COVID-19
     Dosage: DAILY DOSE OF 200-100 MG
     Dates: start: 202105, end: 202105
  8. REMDESIVIR [Concomitant]
     Active Substance: REMDESIVIR
     Dosage: DAILY DOSE OF 200-100 MG
  9. HEPARIN [Concomitant]
     Active Substance: HEPARIN SODIUM
     Indication: COVID-19
     Dosage: UNK
     Dates: start: 202105
  10. INTERFERON BETA-1A [Concomitant]
     Active Substance: INTERFERON BETA-1A
     Indication: COVID-19
     Dosage: UNK, 1X/DAY
     Dates: start: 202105
  11. AMPHOTERICIN B [Concomitant]
     Active Substance: AMPHOTERICIN B
     Indication: Arteriosclerosis
     Dosage: 250 MG/KG
     Dates: start: 202105
  12. AMPHOTERICIN B [Concomitant]
     Active Substance: AMPHOTERICIN B
     Dosage: 150 MG/KG, 1X/DAY
     Route: 042
     Dates: start: 202105, end: 202105
  13. LASIX [Concomitant]
     Active Substance: FUROSEMIDE
     Indication: COVID-19
     Dosage: UNK
     Dates: start: 202105
  14. CEFTRIAXONE [Concomitant]
     Active Substance: CEFTRIAXONE
     Indication: COVID-19
     Dosage: UNK
     Dates: start: 202105
  15. ZITA MET [Concomitant]
     Dosage: DOSE OF 50/1000

REACTIONS (2)
  - Rhinocerebral mucormycosis [Recovering/Resolving]
  - Off label use [Unknown]
